FAERS Safety Report 23056074 (Version 1)
Quarter: 2023Q4

REPORT INFORMATION
  Report Type: Spontaneous
  Country: FR (occurrence: FR)
  Receive Date: 20231011
  Receipt Date: 20231011
  Transmission Date: 20240110
  Serious: Yes (Hospitalization)
  Sender: FDA-Public Use
  Company Number: None

PATIENT
  Age: 73 Year
  Sex: Female

DRUGS (6)
  1. ESOMEPRAZOLE [Suspect]
     Active Substance: ESOMEPRAZOLE
     Indication: Gastrooesophageal reflux disease
     Dosage: 20 MILLIGRAM, QD
     Route: 048
     Dates: start: 202304, end: 202307
  2. LANSOPRAZOLE [Suspect]
     Active Substance: LANSOPRAZOLE
     Indication: Gastrooesophageal reflux disease
     Dosage: 15 MILLIGRAM, QD
     Route: 048
     Dates: start: 202308, end: 20230905
  3. SINEMET [Suspect]
     Active Substance: CARBIDOPA\LEVODOPA
     Indication: Parkinson^s disease
     Dosage: 200 MILLIGRAM, QD
     Route: 048
     Dates: start: 2021
  4. BENSERAZIDE HYDROCHLORIDE\LEVODOPA [Suspect]
     Active Substance: BENSERAZIDE HYDROCHLORIDE\LEVODOPA
     Indication: Parkinson^s disease
     Dosage: 937.5 MILLIGRAM, QD
     Route: 048
     Dates: start: 2013
  5. PRAMIPEXOLE [Concomitant]
     Active Substance: PRAMIPEXOLE
     Indication: Parkinson^s disease
     Dosage: 1.05 MILLIGRAM, QD
     Route: 048
     Dates: start: 2021
  6. MIANSERIN HYDROCHLORIDE [Concomitant]
     Active Substance: MIANSERIN HYDROCHLORIDE
     Indication: Depression
     Dosage: 60 MILLIGRAM, QD
     Route: 048
     Dates: start: 2021

REACTIONS (1)
  - Colitis microscopic [Not Recovered/Not Resolved]

NARRATIVE: CASE EVENT DATE: 20230701
